FAERS Safety Report 8564188-3 (Version None)
Quarter: 2012Q3

REPORT INFORMATION
  Report Type: 
  Country: None (occurrence: None)
  Receive Date: 20120803
  Receipt Date: 20120719
  Transmission Date: 20120928
  Serious: Yes (Hospitalization)
  Sender: FDA-Public Use
  Company Number: IL-VERTEX PHARMACEUTICALS INC.-000000000000001301

PATIENT
  Sex: Male
  Weight: 85 kg

DRUGS (13)
  1. TELAPREVIR [Suspect]
     Indication: HEPATITIS C
     Dosage: DOSAGE FORM: TABLET
     Route: 048
     Dates: start: 20120703, end: 20120717
  2. PEGINTERFERON ALFA-2A [Concomitant]
     Indication: HEPATITIS C
     Dosage: DOSAGE FORM: INJECTION
     Dates: start: 20120703, end: 20120717
  3. METFORMIN HYDROCHLORIDE [Concomitant]
     Indication: HEPATIC STEATOSIS
     Route: 048
  4. LOSARTAN POTASSIUM [Concomitant]
     Indication: HYPERTENSION
     Route: 048
  5. AMLODIPINE MALEATE [Concomitant]
     Indication: HYPERTENSION
     Route: 048
  6. PLACEBO [Concomitant]
     Indication: HEPATITIS C
     Dosage: DOSAGE FORM: CAPSULE
     Route: 048
     Dates: start: 20120703, end: 20120717
  7. URSODIOL [Concomitant]
     Indication: HEPATIC STEATOSIS
     Route: 048
     Dates: end: 20120703
  8. ATENOLOL [Concomitant]
     Indication: HYPERTENSION
     Route: 048
  9. PROCTOZORIN [Concomitant]
     Indication: ANAL PRURITUS
     Route: 061
     Dates: start: 20120711
  10. RIBAVIRIN [Concomitant]
     Indication: HEPATITIS C
     Dosage: DOSAGE FORM: TABLET
     Route: 048
     Dates: start: 20120703, end: 20120717
  11. DOXAZOSIN MESYLATE [Concomitant]
     Indication: HYPERTENSION
     Route: 048
  12. COLECALCIFEROL [Concomitant]
     Indication: HEPATIC STEATOSIS
     Dosage: 800 DROPS
     Route: 048
  13. COLCHICINE [Concomitant]
     Indication: HEPATIC STEATOSIS
     Route: 048
     Dates: end: 20120703

REACTIONS (2)
  - PANCREATITIS ACUTE [None]
  - RENAL FAILURE ACUTE [None]
